FAERS Safety Report 7441844-1 (Version None)
Quarter: 2011Q2

REPORT INFORMATION
  Report Type: 
  Country: None (occurrence: None)
  Receive Date: 20110428
  Receipt Date: 20091113
  Transmission Date: 20111010
  Serious: Yes (Hospitalization, Other)
  Sender: FDA-Public Use
  Company Number: US-BAYER-200939206NA

PATIENT
  Age: 64 Year
  Sex: Male
  Weight: 78.005 kg

DRUGS (32)
  1. DOCUSATE [Concomitant]
     Dosage: 100 MG, UNK
     Route: 048
     Dates: start: 20020707
  2. VASOPRESSIN [VASOPRESSIN] [Concomitant]
     Dosage: 40 U, UNK
     Route: 042
     Dates: start: 20020719
  3. MILRINONE [Concomitant]
     Dosage: 20 G, D5W 100ML
     Route: 042
     Dates: start: 20020719
  4. PROTAMIN [Concomitant]
     Indication: COAGULATION TIME SHORTENED
  5. CEFAZOLIN [Concomitant]
     Dosage: 1 G, D5W
     Route: 042
     Dates: start: 20020718
  6. NITROGLYCERIN [Concomitant]
     Dosage: 50 MG, 250 ML
     Route: 042
     Dates: start: 20020719
  7. METOPROLOL [Concomitant]
     Dosage: 100 MG, BID
  8. GEMFIBROZIL [Concomitant]
     Dosage: 600 MG, QD
     Route: 048
     Dates: start: 20020707
  9. GLYBURIDE [Concomitant]
     Dosage: 5 MG, BID
     Route: 048
     Dates: start: 20020707
  10. ISOSORBIDE DINITRATE [Concomitant]
     Dosage: 20 MG, TID
     Route: 048
  11. TEMAZEPAM [Concomitant]
     Indication: SLEEP DISORDER THERAPY
     Dosage: 15 MG, HS
     Route: 048
  12. RANITIDINE [Concomitant]
     Dosage: 150 ML, D5W 250 ML
     Route: 042
     Dates: start: 20020719
  13. NORMAL SALINE [Concomitant]
     Dosage: 250 ML, WITH VASOPRESSIN
     Route: 042
     Dates: start: 20020719
  14. METOPROLOL TARTRATE [Concomitant]
     Dosage: 100 MG, BID
     Dates: start: 20020703
  15. CALCIUM CHLORIDUM [Concomitant]
     Dosage: 2 G, D5W IN 50 ML
     Route: 042
     Dates: start: 20020719
  16. INSULIN HUMAN [Concomitant]
     Dosage: 100 U, DRIP 100 ML NORMAL SALINE
     Route: 041
     Dates: start: 20020719
  17. MAGNESIUM SULFATE [Concomitant]
     Dosage: 2 G, D5W IN 50 ML
     Route: 042
     Dates: start: 20020719
  18. METFORMIN [Concomitant]
     Dosage: 500 MG, BID
     Route: 048
     Dates: start: 20020707
  19. FERROUS GLUCONATE [Concomitant]
     Indication: ANAEMIA
  20. RABEPRAZOLE SODIUM [Concomitant]
     Indication: ULCER
     Dosage: 20 MG, QD
     Route: 048
  21. PROPOFOL [Concomitant]
     Dosage: 100 MG, UNK
     Route: 042
     Dates: start: 20020719
  22. POTASSIUM CHLORIDE [Concomitant]
     Dosage: 20 MEQ, IN 50 ML
     Route: 042
     Dates: start: 20020719
  23. TRASYLOL [Suspect]
     Indication: CORONARY ARTERY BYPASS
     Route: 042
     Dates: start: 20020719
  24. CEFAZOLIN [Concomitant]
     Dosage: 1 G, D5W 50 ML
     Route: 042
     Dates: start: 20020719
  25. NITROGLYCERIN [Concomitant]
     Dosage: 0.4 MG, PRN EVERY 15 MIN UNDER TONGUE, N MORE THAN 3
     Route: 060
     Dates: start: 20020707
  26. EPOETIN ALFA [Concomitant]
     Indication: ANAEMIA
     Dosage: 40000 U, UNK
     Route: 042
     Dates: start: 20020718
  27. LISINOPRIL [Concomitant]
     Dosage: 2.5 MG, DAILY
     Route: 048
  28. CRESTOR [Concomitant]
     Indication: BLOOD CHOLESTEROL INCREASED
  29. AMIODARONE [Concomitant]
     Dosage: 900 MG, UNK
     Route: 042
     Dates: start: 20020719
  30. FOLIC ACID [Concomitant]
  31. NORMAL SALINE [Concomitant]
     Dosage: 100 ML, WITH INSULIN
     Route: 042
     Dates: start: 20020719
  32. HEPARIN [Concomitant]

REACTIONS (10)
  - ANHEDONIA [None]
  - INJURY [None]
  - UNEVALUABLE EVENT [None]
  - PAIN [None]
  - RENAL INJURY [None]
  - EMOTIONAL DISTRESS [None]
  - FEAR [None]
  - RENAL FAILURE [None]
  - STRESS [None]
  - ANXIETY [None]
